FAERS Safety Report 6898550-1 (Version None)
Quarter: 2010Q3

REPORT INFORMATION
  Report Type: 
  Country: None (occurrence: None)
  Receive Date: 20100802
  Receipt Date: 20071031
  Transmission Date: 20110219
  Serious: Yes (Other)
  Sender: FDA-Public Use
  Company Number: US-PFIZER INC-2007060844

PATIENT
  Sex: Female
  Weight: 77.1 kg

DRUGS (6)
  1. LYRICA [Suspect]
     Indication: SCIATICA
     Dates: start: 20061201, end: 20061201
  2. ACCUPRIL [Concomitant]
  3. CARDURA [Concomitant]
  4. ZOLOFT [Concomitant]
  5. CRESTOR [Concomitant]
  6. CORTICOSTEROIDS [Concomitant]

REACTIONS (2)
  - OEDEMA PERIPHERAL [None]
  - PANCREATITIS [None]
